FAERS Safety Report 9392981 (Version 1)
Quarter: 2013Q3

REPORT INFORMATION
  Report Type: Spontaneous
  Country: US (occurrence: US)
  Receive Date: 20130710
  Receipt Date: 20130710
  Transmission Date: 20140515
  Serious: No
  Sender: FDA-Public Use
  Company Number: US-BAYER-2013-079852

PATIENT
  Sex: Female

DRUGS (1)
  1. CIPRO [Suspect]
     Indication: BLOOD URINE PRESENT

REACTIONS (4)
  - Asthenia [None]
  - Nasopharyngitis [None]
  - Oropharyngeal pain [None]
  - Dysphonia [None]
